FAERS Safety Report 15419660 (Version 8)
Quarter: 2019Q4

REPORT INFORMATION
  Report Type: Spontaneous
  Country: US (occurrence: US)
  Receive Date: 20180924
  Receipt Date: 20191127
  Transmission Date: 20200122
  Serious: Yes (Death, Hospitalization, Other)
  Sender: FDA-Public Use
  Company Number: US-LEXICON PHARMACEUTICALS, INC-18-1606-01161

PATIENT
  Age: 77 Year
  Sex: Male

DRUGS (32)
  1. TELOTRISTAT ETHYL [Suspect]
     Active Substance: TELOTRISTAT ETHYL
     Route: 048
     Dates: start: 20190525
  2. BIOTIN [Concomitant]
     Active Substance: BIOTIN
  3. CALCIUM [Concomitant]
     Active Substance: CALCIUM
  4. NITROSTAT [Concomitant]
     Active Substance: NITROGLYCERIN
  5. VITAMIN B12 [Concomitant]
     Active Substance: CYANOCOBALAMIN
  6. VITAMIN D3 [Concomitant]
     Active Substance: CHOLECALCIFEROL
  7. DONEPEZIL. [Concomitant]
     Active Substance: DONEPEZIL
  8. CETIRIZINE [Concomitant]
     Active Substance: CETIRIZINE HYDROCHLORIDE
  9. SIMVASTATIN. [Concomitant]
     Active Substance: SIMVASTATIN
  10. TELOTRISTAT ETHYL [Suspect]
     Active Substance: TELOTRISTAT ETHYL
     Indication: CARCINOID SYNDROME
     Route: 048
     Dates: start: 20171003, end: 20190801
  11. FISH OIL [Concomitant]
     Active Substance: FISH OIL
  12. COMBIVENT RESPIMAT [Concomitant]
     Active Substance: ALBUTEROL SULFATE\IPRATROPIUM BROMIDE
  13. FLUTICASONE PROP [Concomitant]
     Active Substance: FLUTICASONE PROPIONATE
  14. INSULIN CARTRIDGE [Concomitant]
  15. METOPROLOL TARTRATE. [Concomitant]
     Active Substance: METOPROLOL TARTRATE
  16. TYLENOL [Concomitant]
     Active Substance: ACETAMINOPHEN
  17. LANREOTIDE [Concomitant]
     Active Substance: LANREOTIDE
     Dates: start: 20160520
  18. ASCRIPTIN [Concomitant]
     Active Substance: ASPIRIN
  19. DIPHENHYDRAM [Concomitant]
  20. ISOSORBIDE MONONITRATE. [Concomitant]
     Active Substance: ISOSORBIDE MONONITRATE
  21. LOSARTAN. [Concomitant]
     Active Substance: LOSARTAN
  22. PARICALCITOL. [Concomitant]
     Active Substance: PARICALCITOL
  23. TELOTRISTAT ETHYL [Suspect]
     Active Substance: TELOTRISTAT ETHYL
     Route: 048
     Dates: start: 20190819
  24. HYDROCODONE BITARTRATE. [Concomitant]
     Active Substance: HYDROCODONE BITARTRATE
  25. TELOTRISTAT ETHYL [Suspect]
     Active Substance: TELOTRISTAT ETHYL
     Route: 048
     Dates: start: 2019
  26. BUMETANIDE. [Concomitant]
     Active Substance: BUMETANIDE
  27. FOLIC ACID. [Concomitant]
     Active Substance: FOLIC ACID
  28. IRON [Concomitant]
     Active Substance: IRON
  29. JANUVIA [Concomitant]
     Active Substance: SITAGLIPTIN PHOSPHATE
  30. KLOR-CON [Concomitant]
     Active Substance: POTASSIUM CHLORIDE
  31. NIASPAN [Concomitant]
     Active Substance: NIACIN
  32. VITAMIN C [Concomitant]
     Active Substance: ASCORBIC ACID

REACTIONS (15)
  - Ligament sprain [Unknown]
  - Fall [Unknown]
  - Haemoglobin decreased [Not Recovered/Not Resolved]
  - Musculoskeletal pain [Not Recovered/Not Resolved]
  - Urinary tract infection [Unknown]
  - Malaise [Unknown]
  - Weight decreased [Not Recovered/Not Resolved]
  - Death [Fatal]
  - Dialysis [Not Recovered/Not Resolved]
  - Dyspnoea [Unknown]
  - Blood potassium increased [Recovered/Resolved]
  - Asthenia [Unknown]
  - Oedema peripheral [Not Recovered/Not Resolved]
  - Off label use [Not Recovered/Not Resolved]
  - Furuncle [Not Recovered/Not Resolved]

NARRATIVE: CASE EVENT DATE: 20171003
